FAERS Safety Report 5853901-1 (Version None)
Quarter: 2008Q3

REPORT INFORMATION
  Report Type: 
  Country: None (occurrence: None)
  Receive Date: 20080822
  Receipt Date: 20080822
  Transmission Date: 20090109
  Serious: Yes (Disabling)
  Sender: FDA-Public Use
  Company Number: A0743093A

PATIENT
  Age: 36 Year
  Sex: Female

DRUGS (6)
  1. WELLBUTRIN XL [Suspect]
     Indication: DEPRESSION
     Dosage: 450MG PER DAY
     Route: 048
     Dates: start: 20060101, end: 20080701
  2. BUPROPION HYDROCHLORIDE [Suspect]
     Indication: DEPRESSION
     Dosage: 450MG PER DAY
     Route: 048
     Dates: start: 20080701, end: 20080813
  3. PROZAC [Concomitant]
  4. UNSPECIFIED MEDICATION [Concomitant]
  5. BIRTH CONTROL [Concomitant]
  6. TRAZODONE HCL [Concomitant]

REACTIONS (1)
  - DRUG SCREEN POSITIVE [None]
